FAERS Safety Report 8327553-5 (Version None)
Quarter: 2012Q2

REPORT INFORMATION
  Report Type: 
  Country: None (occurrence: None)
  Receive Date: 20120502
  Receipt Date: 20120424
  Transmission Date: 20120825
  Serious: Yes (Other)
  Sender: FDA-Public Use
  Company Number: JP-BAYER-2012-012332

PATIENT
  Age: 67 Year
  Sex: Male
  Weight: 54 kg

DRUGS (1)
  1. NEXAVAR [Suspect]
     Indication: HEPATIC NEOPLASM MALIGNANT
     Dosage: 400 MG, BID
     Route: 048
     Dates: start: 20111021, end: 20111221

REACTIONS (1)
  - PORTAL HYPERTENSIVE GASTROPATHY [None]
